FAERS Safety Report 6216538-0 (Version None)
Quarter: 2009Q2

REPORT INFORMATION
  Report Type: 
  Country: None (occurrence: None)
  Receive Date: 20090605
  Receipt Date: 20090528
  Transmission Date: 20091009
  Serious: Yes (Hospitalization)
  Sender: FDA-Public Use
  Company Number: FR-BRISTOL-MYERS SQUIBB COMPANY-14646103

PATIENT
  Age: 64 Year
  Sex: Male

DRUGS (6)
  1. CETUXIMAB [Suspect]
     Indication: ANAL CANCER
     Dosage: MOST RECENT INFUSION:21APR09.
     Route: 042
     Dates: start: 20090407
  2. CISPLATIN [Suspect]
     Indication: ANAL CANCER
     Dosage: MOST RECENT INFUSION:14APR09.
     Route: 042
     Dates: start: 20090414
  3. FLUOROURACIL [Suspect]
     Indication: ANAL CANCER
     Dosage: MOST RECENT INFUSION:17APR09.
     Route: 042
     Dates: start: 20090414
  4. RADIATION THERAPY [Suspect]
     Indication: ANAL CANCER
     Dosage: MOST RECENT TREATMENT: 24APR09.
     Dates: start: 20090414
  5. XANAX [Concomitant]
     Route: 048
  6. LOPRAZOLAM [Concomitant]
     Indication: ANXIETY
     Route: 048
     Dates: start: 20090301

REACTIONS (2)
  - NEUTROPENIA [None]
  - THROMBOCYTOPENIA [None]
